APPROVED DRUG PRODUCT: DABIGATRAN ETEXILATE MESYLATE
Active Ingredient: DABIGATRAN ETEXILATE MESYLATE
Strength: EQ 75MG BASE
Dosage Form/Route: CAPSULE;ORAL
Application: A215233 | Product #001 | TE Code: AB
Applicant: ALEMBIC PHARMACEUTICALS LTD
Approved: Jun 14, 2024 | RLD: No | RS: No | Type: RX